FAERS Safety Report 16238691 (Version 1)
Quarter: 2019Q2

REPORT INFORMATION
  Report Type: Spontaneous
  Country: US (occurrence: US)
  Receive Date: 20190424
  Receipt Date: 20190424
  Transmission Date: 20190711
  Serious: Yes (Hospitalization)
  Sender: FDA-Public Use
  Company Number: None

PATIENT
  Age: 82 Year
  Sex: Female

DRUGS (17)
  1. TRIAMCINOLONE CREAM [Concomitant]
     Active Substance: TRIAMCINOLONE
     Dates: start: 20161213
  2. IRON [Concomitant]
     Active Substance: IRON
     Dates: start: 20161213
  3. HUMIRA [Suspect]
     Active Substance: ADALIMUMAB
     Indication: PSORIASIS
     Dosage: ?          OTHER FREQUENCY:EVERY OTHER WEEK;?
     Route: 058
  4. VITAMIN D3 [Concomitant]
     Active Substance: CHOLECALCIFEROL
     Dates: start: 20161213
  5. LOSARTAN. [Concomitant]
     Active Substance: LOSARTAN
     Dates: start: 20161025
  6. BETAMETHASONE. [Concomitant]
     Active Substance: BETAMETHASONE
     Dates: start: 20161213
  7. ATORVASTATIN [Concomitant]
     Active Substance: ATORVASTATIN
     Dates: start: 20161025
  8. ASPIRIN. [Concomitant]
     Active Substance: ASPIRIN
     Dates: start: 20161213
  9. CETIRIZINE [Concomitant]
     Active Substance: CETIRIZINE HYDROCHLORIDE
     Dates: start: 20161213
  10. ELIQUIS [Concomitant]
     Active Substance: APIXABAN
     Dates: start: 20190408
  11. CLOBETASOL [Concomitant]
     Active Substance: CLOBETASOL
     Dates: start: 20161213
  12. BIOTIN [Concomitant]
     Active Substance: BIOTIN
     Dates: start: 20161213
  13. SYMBICORT [Concomitant]
     Active Substance: BUDESONIDE\FORMOTEROL FUMARATE DIHYDRATE
     Dates: start: 20161025
  14. MULTIVITAMIN [Concomitant]
     Active Substance: VITAMINS
     Dates: start: 20161213
  15. BUDESONIDE. [Concomitant]
     Active Substance: BUDESONIDE
     Dates: start: 20190412
  16. LOSARTAN/HCTZ [Concomitant]
     Active Substance: HYDROCHLOROTHIAZIDE\LOSARTAN
     Dates: start: 20181127
  17. PREDNISONE. [Concomitant]
     Active Substance: PREDNISONE
     Dates: start: 20190408

REACTIONS (3)
  - Dehydration [None]
  - Dyspnoea [None]
  - Heart rate irregular [None]

NARRATIVE: CASE EVENT DATE: 20190423
